FAERS Safety Report 13194553 (Version 1)
Quarter: 2017Q1

REPORT INFORMATION
  Report Type: Spontaneous
  Country: US (occurrence: US)
  Receive Date: 20170207
  Receipt Date: 20170207
  Transmission Date: 20170428
  Serious: No
  Sender: FDA-Public Use
  Company Number: US-JAZZ-2014-US-014442

PATIENT
  Sex: Female

DRUGS (9)
  1. FENTANYL. [Suspect]
     Active Substance: FENTANYL
     Dosage: 86.68 ?G, QH
     Route: 037
     Dates: start: 20140902
  2. CLONIDINE. [Suspect]
     Active Substance: CLONIDINE
     Indication: POST LAMINECTOMY SYNDROME
     Dosage: 38.8 ?G, QH
     Route: 037
     Dates: start: 20140807, end: 20140902
  3. PRIALT [Suspect]
     Active Substance: ZICONOTIDE ACETATE
     Indication: POST LAMINECTOMY SYNDROME
     Dosage: 0.105 ?G, QH
     Route: 037
     Dates: start: 20140807, end: 20140902
  4. CLONIDINE. [Suspect]
     Active Substance: CLONIDINE
     Dosage: 42.7 ?G, QH
     Route: 037
  5. PRIALT [Suspect]
     Active Substance: ZICONOTIDE ACETATE
     Dosage: 0.115 ?G, QH
     Route: 037
     Dates: start: 20140902
  6. FENTANYL. [Suspect]
     Active Substance: FENTANYL
     Indication: POST LAMINECTOMY SYNDROME
     Dosage: 78.85 ?G, QH
     Route: 037
     Dates: start: 20140807, end: 20140902
  7. PRIALT [Suspect]
     Active Substance: ZICONOTIDE ACETATE
     Indication: PAIN
     Dosage: UNK ?G, QH
     Route: 037
  8. FENTANYL. [Suspect]
     Active Substance: FENTANYL
     Indication: PAIN
     Dosage: UNK ?G, QH
     Route: 037
  9. CLONIDINE. [Suspect]
     Active Substance: CLONIDINE
     Indication: PAIN
     Dosage: UNK ?G, QH
     Route: 037

REACTIONS (2)
  - Device issue [Recovered/Resolved]
  - Pain [Recovered/Resolved]
